FAERS Safety Report 7881283-2 (Version None)
Quarter: 2011Q4

REPORT INFORMATION
  Report Type: 
  Country: None (occurrence: None)
  Receive Date: 20111101
  Receipt Date: 20111031
  Transmission Date: 20120403
  Serious: Yes (Other)
  Sender: FDA-Public Use
  Company Number: US-RB-030966-11

PATIENT
  Sex: Female

DRUGS (3)
  1. SUBUTEX [Suspect]
     Indication: DRUG DEPENDENCE
     Route: 060
     Dates: start: 20110426
  2. SE-NATAL VITAMIN [Suspect]
     Indication: PREGNANCY
     Dosage: 1 TABLET DAILY (2 DOSES)
     Route: 048
     Dates: start: 20110701, end: 20110701
  3. SUBOXONE [Suspect]
     Indication: DRUG DEPENDENCE
     Dosage: 2-4 MG/DAILY
     Route: 060
     Dates: start: 20101201, end: 20110425

REACTIONS (2)
  - STEVENS-JOHNSON SYNDROME [None]
  - MATERNAL EXPOSURE DURING PREGNANCY [None]
